FAERS Safety Report 9342537 (Version 1)
Quarter: 2013Q2

REPORT INFORMATION
  Report Type: Spontaneous
  Country: DE (occurrence: DE)
  Receive Date: 20130611
  Receipt Date: 20130611
  Transmission Date: 20140414
  Serious: Yes (Hospitalization, Other)
  Sender: FDA-Public Use
  Company Number: DE-ELI_LILLY_AND_COMPANY-DE201305005198

PATIENT
  Age: 51 Year
  Sex: Female
  Weight: 90 kg

DRUGS (4)
  1. CYMBALTA [Suspect]
     Dosage: UNK UNK, UNKNOWN
     Route: 048
  2. CYMBALTA [Suspect]
     Dosage: 4200 MG, UNK
     Route: 065
  3. TRANXILIUM [Concomitant]
     Dosage: 1000 UNK, UNK
     Route: 065
  4. TRIMIPRAMIN [Concomitant]
     Dosage: 10000 DF, UNKNOWN
     Route: 065

REACTIONS (6)
  - Suicide attempt [Recovered/Resolved]
  - Coma [Recovered/Resolved]
  - Hypotension [Recovered/Resolved]
  - Bradycardia [Recovered/Resolved]
  - Pneumonia aspiration [Recovered/Resolved]
  - Intentional overdose [Unknown]
